FAERS Safety Report 4983206-2 (Version None)
Quarter: 2006Q2

REPORT INFORMATION
  Report Type: 
  Country: None (occurrence: None)
  Receive Date: 20060419
  Receipt Date: 20060410
  Transmission Date: 20061013
  Serious: Yes (Other)
  Sender: FDA-Public Use
  Company Number: 008-20785-06040524

PATIENT
  Age: 62 Year
  Sex: Male

DRUGS (4)
  1. THALIDOMIDE            (THALIDOMIDE) [Suspect]
     Indication: CARDIAC AMYLOIDOSIS
     Dosage: SEE IMAGE, ORAL
     Route: 048
  2. DEXAMETHASONE [Suspect]
     Indication: CARDIAC AMYLOIDOSIS
     Dosage: 40 MG, DAYS 1-4, Q4WK
  3. PREDNISOLONE [Suspect]
     Indication: CARDIAC AMYLOIDOSIS
     Dosage: 50 MG
  4. ASPIRIN [Concomitant]

REACTIONS (8)
  - CARDIAC FAILURE [None]
  - CEREBRAL HAEMORRHAGE [None]
  - EMBOLISM [None]
  - FLUID RETENTION [None]
  - NEUROPATHY PERIPHERAL [None]
  - SKULL FRACTURE [None]
  - SYNCOPE [None]
  - TRIFASCICULAR BLOCK [None]
